FAERS Safety Report 9441127 (Version 1)
Quarter: 2013Q3

REPORT INFORMATION
  Report Type: Spontaneous
  Country: FR (occurrence: FR)
  Receive Date: 20130805
  Receipt Date: 20130805
  Transmission Date: 20140515
  Serious: Yes (Hospitalization)
  Sender: FDA-Public Use
  Company Number: FR-GLAXOSMITHKLINE-B0911368A

PATIENT
  Age: 12 Year
  Sex: Female
  Weight: 42.5 kg

DRUGS (1)
  1. SERETIDE [Suspect]
     Indication: ASTHMA
     Route: 055
     Dates: start: 20130621, end: 20130707

REACTIONS (3)
  - Hypokalaemia [Recovered/Resolved]
  - Extrasystoles [Recovered/Resolved]
  - Tachycardia [Recovered/Resolved]
